FAERS Safety Report 8089578-7 (Version None)
Quarter: 2012Q1

REPORT INFORMATION
  Report Type: 
  Country: None (occurrence: None)
  Receive Date: 20120128
  Receipt Date: 20110628
  Transmission Date: 20120608
  Serious: No
  Sender: FDA-Public Use
  Company Number: US-ABBOTT-11P-163-0835044-00

PATIENT
  Age: 60 Year
  Sex: Female

DRUGS (12)
  1. METFFORMIN HYDROCHLORIDE [Concomitant]
     Indication: DIABETES MELLITUS
  2. SERTRALINE HYDROCHLORIDE [Concomitant]
     Indication: DEPRESSION
  3. ADULT VITAMINS [Concomitant]
     Indication: PRODUCT USED FOR UNKNOWN INDICATION
  4. BENAZEPRIL HYDROCHLORIDE [Concomitant]
     Indication: BLOOD PRESSURE
  5. GABAPENTIN [Concomitant]
     Indication: NEUROPATHY PERIPHERAL
  6. CLONAZEPAM [Concomitant]
     Indication: DEPRESSION
  7. ASPIRIN [Concomitant]
     Indication: PRODUCT USED FOR UNKNOWN INDICATION
     Dosage: DAILY
  8. CLONAZEPAM [Concomitant]
     Indication: ANXIETY
  9. DILTIAZEM HCL [Concomitant]
     Indication: BLOOD PRESSURE
  10. HUMIRA [Suspect]
     Indication: CROHN'S DISEASE
     Dates: start: 20110315
  11. GLYBURIDE [Concomitant]
     Indication: DIABETES MELLITUS
  12. CLONIDINE [Concomitant]
     Indication: PRODUCT USED FOR UNKNOWN INDICATION

REACTIONS (7)
  - PAIN OF SKIN [None]
  - ARTHRALGIA [None]
  - FALL [None]
  - PAIN [None]
  - FRACTURED COCCYX [None]
  - INJURY [None]
  - JOINT SWELLING [None]
